FAERS Safety Report 7670945-8 (Version None)
Quarter: 2011Q3

REPORT INFORMATION
  Report Type: 
  Country: None (occurrence: None)
  Receive Date: 20110809
  Receipt Date: 20110805
  Transmission Date: 20111222
  Serious: No
  Sender: FDA-Public Use
  Company Number: US-PFIZER INC-2008020673

PATIENT
  Sex: Female
  Weight: 81.63 kg

DRUGS (16)
  1. SYNTHROID [Concomitant]
     Dosage: 75 MG
  2. GLUCOPHAGE [Concomitant]
     Dosage: UNK
  3. DIOVAN [Concomitant]
     Dosage: UNK
  4. CRESTOR [Concomitant]
     Dosage: 20 MG, UNK
  5. CENTRUM [Concomitant]
     Dosage: UNK
  6. GLUCOVANCE [Concomitant]
     Dosage: 25/500 MG
  7. GLYBURIDE [Concomitant]
     Dosage: UNK
  8. LYRICA [Suspect]
     Indication: DIABETIC COMPLICATION
     Dosage: 75 MG, 2X/DAY
     Route: 048
     Dates: end: 20110804
  9. LISINOPRIL [Concomitant]
     Dosage: 40 MG
  10. NEXIUM [Concomitant]
     Dosage: 40 MG, 2X/DAY
  11. DARVOCET [Concomitant]
     Indication: PAIN
     Dosage: UNK
  12. LOPRESSOR [Concomitant]
     Indication: BLOOD PRESSURE ABNORMAL
     Dosage: 50 MG
  13. LYRICA [Suspect]
     Indication: DIABETIC NEUROPATHY
     Dosage: 50 MG, 2X/DAY
     Route: 048
     Dates: start: 20080201, end: 20080301
  14. NEURONTIN [Suspect]
     Indication: DIABETIC NEUROPATHY
     Dosage: 100 MG, 1X/DAY
     Dates: start: 20090615
  15. VITAMIN E [Concomitant]
     Dosage: UNK
  16. LYRICA [Suspect]
     Indication: HYPOAESTHESIA
     Dosage: 75 MG, 2X/DAY
     Route: 048
     Dates: start: 20080301, end: 20090501

REACTIONS (4)
  - HYPOAESTHESIA [None]
  - HEADACHE [None]
  - DRUG INEFFECTIVE [None]
  - SOMNOLENCE [None]
